FAERS Safety Report 4511455-6 (Version None)
Quarter: 2004Q4

REPORT INFORMATION
  Report Type: 
  Country: None (occurrence: None)
  Receive Date: 20041129
  Receipt Date: 20040818
  Transmission Date: 20050328
  Serious: No
  Sender: FDA-Public Use
  Company Number: US-BRISTOL-MYERS SQUIBB COMPANY-12676169

PATIENT
  Age: 47 Year
  Sex: Male
  Weight: 88 kg

DRUGS (17)
  1. ABILIFY [Suspect]
     Indication: SCHIZOPHRENIA
     Route: 048
  2. ARTANE [Concomitant]
  3. VALIUM [Concomitant]
  4. COMPAZINE [Concomitant]
  5. LEVOXYL [Concomitant]
  6. BUSPAR [Concomitant]
  7. PROZAC [Concomitant]
  8. GLUCOVANCE [Concomitant]
  9. CRESTOR [Concomitant]
  10. PREVACID [Concomitant]
  11. NEXIUM [Concomitant]
  12. REGLAN [Concomitant]
  13. TYLENOL W/ CODEINE NO. 4 [Concomitant]
  14. ULTRAM [Concomitant]
  15. VICODIN [Concomitant]
  16. LITHIUM [Concomitant]
  17. ZOLOFT [Concomitant]

REACTIONS (3)
  - HYPERSOMNIA [None]
  - NAUSEA [None]
  - TREMOR [None]
